FAERS Safety Report 4680713-7 (Version None)
Quarter: 2005Q2

REPORT INFORMATION
  Report Type: 
  Country: None (occurrence: None)
  Receive Date: 20050601
  Receipt Date: 20050527
  Transmission Date: 20051028
  Serious: Yes (Life-Threatening)
  Sender: FDA-Public Use
  Company Number: A501025410/PHRM2005 FRO1598

PATIENT
  Age: 30 Year
  Sex: Female

DRUGS (1)
  1. AK-FLUOR [Suspect]
     Dosage: INTRAVENOUS
     Route: 042

REACTIONS (2)
  - DYSPNOEA [None]
  - THROAT IRRITATION [None]
